FAERS Safety Report 19883672 (Version 1)
Quarter: 2021Q3

REPORT INFORMATION
  Report Type: Report from Study
  Country: None (occurrence: CA)
  Receive Date: 20210927
  Receipt Date: 20210927
  Transmission Date: 20211014
  Serious: Yes (Hospitalization, Other)
  Sender: FDA-Public Use
  Company Number: CA-ABBVIE-21K-028-4092849-00

PATIENT
  Age: 62 Year
  Sex: Male

DRUGS (1)
  1. SKYRIZI [Suspect]
     Active Substance: RISANKIZUMAB-RZAA
     Indication: PRODUCT USED FOR UNKNOWN INDICATION
     Route: 058
     Dates: start: 20200406

REACTIONS (6)
  - Lung neoplasm malignant [Unknown]
  - Pleural effusion [Unknown]
  - Cardiac failure [Unknown]
  - Intracardiac thrombus [Unknown]
  - Frustration tolerance decreased [Unknown]
  - Rash [Unknown]

NARRATIVE: CASE EVENT DATE: 202010
